FAERS Safety Report 8132331-6 (Version None)
Quarter: 2012Q1

REPORT INFORMATION
  Report Type: 
  Country: None (occurrence: None)
  Receive Date: 20120207
  Receipt Date: 20120130
  Transmission Date: 20120608
  Serious: Yes (Other)
  Sender: FDA-Public Use
  Company Number: 2012MA001556

PATIENT
  Age: 47 Year
  Sex: Male

DRUGS (3)
  1. VENLAFAXINE HCL [Suspect]
     Indication: DEPRESSION
  2. RITALIN [Concomitant]
  3. EFFEXOR DEPOT [Concomitant]

REACTIONS (3)
  - DEPRESSION [None]
  - CONDITION AGGRAVATED [None]
  - PRODUCT SUBSTITUTION ISSUE [None]
